FAERS Safety Report 10088273 (Version 1)
Quarter: 2014Q2

REPORT INFORMATION
  Report Type: Spontaneous
  Country: US (occurrence: US)
  Receive Date: 20140421
  Receipt Date: 20140421
  Transmission Date: 20141212
  Serious: Yes (Hospitalization)
  Sender: FDA-Public Use
  Company Number: US-ROCHE-1379590

PATIENT
  Age: 68 Year
  Sex: Female

DRUGS (20)
  1. PERJETA [Suspect]
     Indication: METASTATIC NEOPLASM
     Route: 065
  2. HERCEPTIN [Suspect]
     Indication: METASTATIC NEOPLASM
     Route: 065
  3. DOCETAXEL [Concomitant]
     Indication: METASTATIC NEOPLASM
  4. AZITHROMYCIN [Concomitant]
     Route: 048
  5. SALINE NASAL SPRAY [Concomitant]
     Dosage: 1 PUFF
     Route: 045
  6. CIPRO [Concomitant]
     Indication: PYREXIA
     Route: 048
  7. DEXAMETHASONE [Concomitant]
     Route: 048
  8. KLONOPIN [Concomitant]
     Route: 048
  9. LETROZOLE [Concomitant]
     Route: 048
  10. PROCHLORPERAZINE MALEATE [Concomitant]
     Indication: NAUSEA
     Dosage: PRN
     Route: 048
  11. RANITIDINE HCL [Concomitant]
     Indication: NAUSEA
     Dosage: QHS
     Route: 048
  12. RANITIDINE HCL [Concomitant]
     Indication: PROPHYLAXIS AGAINST GASTROINTESTINAL ULCER
  13. ZOFRAN [Concomitant]
     Indication: NAUSEA
     Route: 048
  14. ZOLOFT [Concomitant]
     Route: 048
  15. LEVAQUIN [Concomitant]
     Route: 048
  16. VEETIDS [Concomitant]
     Route: 048
  17. LIPITOR [Concomitant]
     Route: 048
  18. ADVIL [Concomitant]
     Route: 048
  19. SYNTHROID [Concomitant]
     Route: 048
  20. CEFTRIAXONE SODIUM [Concomitant]
     Route: 042

REACTIONS (7)
  - Pleural effusion [Recovered/Resolved]
  - Cardiomyopathy [Not Recovered/Not Resolved]
  - Acute respiratory failure [Recovered/Resolved]
  - Atelectasis [Recovered/Resolved]
  - Upper respiratory tract infection [Unknown]
  - Decreased appetite [Unknown]
  - Dehydration [Unknown]
